FAERS Safety Report 13877980 (Version 1)
Quarter: 2017Q3

REPORT INFORMATION
  Report Type: Spontaneous
  Country: DE (occurrence: DE)
  Receive Date: 20170817
  Receipt Date: 20170817
  Transmission Date: 20171127
  Serious: Yes (Other)
  Sender: FDA-Public Use
  Company Number: DE-TEVA-797776GER

PATIENT
  Age: 26 Year
  Sex: Female

DRUGS (1)
  1. COPAXONE [Suspect]
     Active Substance: GLATIRAMER ACETATE
     Indication: MULTIPLE SCLEROSIS
     Dates: start: 20161021

REACTIONS (3)
  - Hypoaesthesia [Recovering/Resolving]
  - Intervertebral disc protrusion [Recovered/Resolved with Sequelae]
  - Monoparesis [Recovered/Resolved]

NARRATIVE: CASE EVENT DATE: 201704
